FAERS Safety Report 9854261 (Version 3)
Quarter: 2014Q1

REPORT INFORMATION
  Report Type: Spontaneous
  Country: IT (occurrence: IT)
  Receive Date: 20140130
  Receipt Date: 20140227
  Transmission Date: 20141002
  Serious: Yes (Other)
  Sender: FDA-Public Use
  Company Number: IT-ROCHE-1341571

PATIENT
  Age: 47 Year
  Sex: Male

DRUGS (1)
  1. PEGASYS [Suspect]
     Indication: HEPATITIS B
     Route: 058
     Dates: start: 20130315, end: 20140110

REACTIONS (3)
  - Acquired porphyria [Recovering/Resolving]
  - Hand dermatitis [Recovering/Resolving]
  - Skin discolouration [Recovering/Resolving]
